FAERS Safety Report 5151427-4 (Version None)
Quarter: 2006Q4

REPORT INFORMATION
  Report Type: 
  Country: None (occurrence: None)
  Receive Date: 20061115
  Receipt Date: 20060821
  Transmission Date: 20070319
  Serious: Yes (Death, Hospitalization)
  Sender: FDA-Public Use
  Company Number: PHHO2006IN13735

PATIENT
  Age: 47 Year
  Sex: Male

DRUGS (1)
  1. GLEEVEC [Suspect]
     Indication: CHRONIC MYELOID LEUKAEMIA
     Dosage: 400 MG, QD
     Route: 048
     Dates: start: 20060718

REACTIONS (6)
  - ANAEMIA [None]
  - BONE MARROW FAILURE [None]
  - HAEMORRHAGE [None]
  - JAUNDICE [None]
  - NEUTROPENIC SEPSIS [None]
  - PANCYTOPENIA [None]
